FAERS Safety Report 23204639 (Version 2)
Quarter: 2024Q1

REPORT INFORMATION
  Report Type: Report from Study
  Country: GB (occurrence: GB)
  Receive Date: 20231120
  Receipt Date: 20240205
  Transmission Date: 20240409
  Serious: Yes (Hospitalization, Other)
  Sender: FDA-Public Use
  Company Number: GB-002147023-NVSC2023GB242940

PATIENT
  Sex: Male

DRUGS (1)
  1. MAYZENT [Suspect]
     Active Substance: SIPONIMOD
     Indication: Multiple sclerosis
     Dosage: 2 MG, QD (28 TABLET 2 X 14 TABLETS)
     Route: 048
     Dates: start: 20230508, end: 20240109

REACTIONS (5)
  - Multiple sclerosis [Unknown]
  - Intestinal perforation [Not Recovered/Not Resolved]
  - Central nervous system infection [Unknown]
  - Cerebrovascular accident [Unknown]
  - Infection [Unknown]
